FAERS Safety Report 21417314 (Version 1)
Quarter: 2022Q4

REPORT INFORMATION
  Report Type: Spontaneous
  Country: US (occurrence: US)
  Receive Date: 20221006
  Receipt Date: 20221006
  Transmission Date: 20230113
  Serious: No
  Sender: FDA-Public Use
  Company Number: US-SA-SAC20221004000344

PATIENT
  Sex: Female

DRUGS (11)
  1. AUBAGIO [Suspect]
     Active Substance: TERIFLUNOMIDE
     Indication: Multiple sclerosis
     Dosage: 1 DF, QD
     Route: 048
  2. LOVASTATIN [Concomitant]
     Active Substance: LOVASTATIN
  3. BACLOFEN [Concomitant]
     Active Substance: BACLOFEN
  4. LORATADINE [Concomitant]
     Active Substance: LORATADINE
  5. CLONAZEPAM [Concomitant]
     Active Substance: CLONAZEPAM
  6. GABAPENTIN [Concomitant]
     Active Substance: GABAPENTIN
  7. HYDROCODONE [Concomitant]
     Active Substance: HYDROCODONE
  8. MELOXICAM [Concomitant]
     Active Substance: MELOXICAM
  9. RIZATRIPTAN [Concomitant]
     Active Substance: RIZATRIPTAN
  10. HYDROCHLOROTHIAZIDE [Concomitant]
     Active Substance: HYDROCHLOROTHIAZIDE
  11. FISH OIL [Concomitant]
     Active Substance: FISH OIL
     Dosage: UNK

REACTIONS (1)
  - Impaired healing [Unknown]
